FAERS Safety Report 5694878-1 (Version None)
Quarter: 2008Q2

REPORT INFORMATION
  Report Type: 
  Country: None (occurrence: None)
  Receive Date: 20080404
  Receipt Date: 20080314
  Transmission Date: 20081010
  Serious: No
  Sender: FDA-Public Use
  Company Number: A0711354A

PATIENT
  Age: 5 Year
  Sex: Male
  Weight: 22 kg

DRUGS (3)
  1. ADVAIR HFA [Suspect]
     Indication: ASTHMA
     Dosage: 1SPR TWICE PER DAY
     Route: 055
     Dates: start: 20071101, end: 20080211
  2. NASONEX [Concomitant]
  3. SINGULAIR [Concomitant]

REACTIONS (8)
  - AGGRESSION [None]
  - ANXIETY [None]
  - BELLIGERENCE [None]
  - BRONCHIAL DISORDER [None]
  - DEPRESSION [None]
  - MOOD SWINGS [None]
  - PSYCHOMOTOR HYPERACTIVITY [None]
  - SINUS DISORDER [None]
